FAERS Safety Report 6207768-2 (Version None)
Quarter: 2009Q2

REPORT INFORMATION
  Report Type: 
  Country: None (occurrence: None)
  Receive Date: 20090526
  Receipt Date: 20090513
  Transmission Date: 20091009
  Serious: No
  Sender: FDA-Public Use
  Company Number: 2009-196686-NL

PATIENT
  Age: 38 Year
  Sex: Male

DRUGS (6)
  1. MIRTAZAPINE [Suspect]
     Indication: DEPRESSION
     Dosage: 30 MG/15 MG
     Route: 048
     Dates: start: 20090325, end: 20090414
  2. MIRTAZAPINE [Suspect]
     Indication: DEPRESSION
     Dosage: 30 MG/15 MG
     Route: 048
     Dates: start: 20090415, end: 20090427
  3. DIHYDROCODEINE BITARTRATE INJ [Concomitant]
  4. FLOXACILLIN SODIUM [Concomitant]
  5. IBUPROFEN [Concomitant]
  6. ZOPICLONE [Concomitant]

REACTIONS (6)
  - CHEST PAIN [None]
  - CONDITION AGGRAVATED [None]
  - FALL [None]
  - NAUSEA [None]
  - PORPHYRIA ACUTE [None]
  - PSORIASIS [None]
